FAERS Safety Report 8873034 (Version 2)
Quarter: 2013Q1

REPORT INFORMATION
  Report Type: Spontaneous
  Country: US (occurrence: US)
  Receive Date: 20121030
  Receipt Date: 20130125
  Transmission Date: 20140127
  Serious: Yes (Hospitalization)
  Sender: FDA-Public Use
  Company Number: US-009507513-1210USA011787

PATIENT
  Age: 65 Year
  Sex: Female

DRUGS (4)
  1. VICTRELIS [Suspect]
     Indication: CHRONIC HEPATITIS C
     Dosage: 800 MG, TID
     Route: 048
     Dates: start: 20120808
  2. PEGASYS [Suspect]
     Dosage: 180 MICROGRAM, QW
     Route: 058
  3. RIBAPAK [Suspect]
     Dosage: 400/600 MG, BID
  4. PROCRIT [Concomitant]

REACTIONS (2)
  - Electrolyte imbalance [Unknown]
  - Syncope [Unknown]
